FAERS Safety Report 23446479 (Version 1)
Quarter: 2024Q1

REPORT INFORMATION
  Report Type: Spontaneous
  Country: CN (occurrence: CN)
  Receive Date: 20240126
  Receipt Date: 20240126
  Transmission Date: 20240410
  Serious: Yes (Other)
  Sender: FDA-Public Use
  Company Number: CN-BAYER-2024A014454

PATIENT
  Age: 23 Year
  Sex: Female
  Weight: 60 kg

DRUGS (1)
  1. YASMIN [Suspect]
     Active Substance: DROSPIRENONE\ETHINYL ESTRADIOL
     Indication: Menstruation irregular
     Dosage: 1 DF, QD
     Route: 048
     Dates: start: 20230427, end: 202312

REACTIONS (8)
  - Anxiety [Recovering/Resolving]
  - Insomnia [Recovering/Resolving]
  - Weight increased [Recovering/Resolving]
  - Suicidal ideation [None]
  - Depressed mood [None]
  - Negative thoughts [None]
  - Abnormal withdrawal bleeding [None]
  - Off label use [None]

NARRATIVE: CASE EVENT DATE: 20230101
